FAERS Safety Report 6806548-4 (Version None)
Quarter: 2010Q2

REPORT INFORMATION
  Report Type: 
  Country: None (occurrence: None)
  Receive Date: 20100628
  Receipt Date: 20100628
  Transmission Date: 20101027
  Serious: Yes (Hospitalization)
  Sender: FDA-Public Use
  Company Number: None

PATIENT
  Sex: Male
  Weight: 79.3795 kg

DRUGS (4)
  1. METHOTREXATE [Suspect]
  2. VINBLASTINE SULFATE [Suspect]
  3. DOXORUBICIN HCL [Suspect]
  4. CISPLATIN [Suspect]

REACTIONS (3)
  - BACTERIAL PYELONEPHRITIS [None]
  - ENTEROCOCCAL INFECTION [None]
  - HYDRONEPHROSIS [None]
